FAERS Safety Report 24792445 (Version 1)
Quarter: 2024Q4

REPORT INFORMATION
  Report Type: Spontaneous
  Country: IT (occurrence: IT)
  Receive Date: 20241231
  Receipt Date: 20241231
  Transmission Date: 20250115
  Serious: Yes (Other)
  Sender: HIKMA
  Company Number: IT-HIKMA PHARMACEUTICALS USA INC.-IT-H14001-24-11953

PATIENT
  Age: 68 Year
  Sex: Male

DRUGS (2)
  1. CETUXIMAB [Suspect]
     Active Substance: CETUXIMAB
     Indication: Rectal adenocarcinoma
     Dosage: 363 MILLIGRAM
     Route: 042
     Dates: start: 20240606, end: 20240606
  2. IRINOTECAN [Suspect]
     Active Substance: IRINOTECAN
     Indication: Rectal adenocarcinoma
     Dosage: 261 MILLIGRAM
     Route: 042
     Dates: start: 20240606, end: 20240606

REACTIONS (3)
  - Constipation [Recovering/Resolving]
  - Decreased appetite [Recovering/Resolving]
  - Azotaemia [Recovering/Resolving]

NARRATIVE: CASE EVENT DATE: 20240608
